FAERS Safety Report 7103036-5 (Version None)
Quarter: 2010Q4

REPORT INFORMATION
  Report Type: 
  Country: None (occurrence: None)
  Receive Date: 20101115
  Receipt Date: 20101109
  Transmission Date: 20110411
  Serious: Yes (Other)
  Sender: FDA-Public Use
  Company Number: US-SANOFI-AVENTIS-2010SA057743

PATIENT
  Age: 72 Year
  Sex: Female
  Weight: 122 kg

DRUGS (8)
  1. LANTUS [Suspect]
     Indication: TYPE 2 DIABETES MELLITUS
     Dosage: DOSE:20 UNIT(S)
     Route: 058
     Dates: start: 20070101
  2. OPTICLICK [Suspect]
     Dates: start: 20070101
  3. HUMALOG [Concomitant]
     Indication: TYPE 2 DIABETES MELLITUS
     Dosage: SLIDING SCALE QID DOSE:25 UNIT(S)
     Route: 065
     Dates: start: 20070707
  4. SYNTHROID [Concomitant]
     Indication: HYPOTHYROIDISM
     Route: 065
     Dates: start: 19850101
  5. COZAAR [Concomitant]
     Dates: start: 19900101
  6. LASIX [Concomitant]
     Dates: start: 19900101
  7. NEXIUM [Concomitant]
     Route: 065
     Dates: start: 20070915
  8. ASPIRIN [Concomitant]

REACTIONS (2)
  - CONDITION AGGRAVATED [None]
  - VITRECTOMY [None]
